FAERS Safety Report 7301796-1 (Version None)
Quarter: 2011Q1

REPORT INFORMATION
  Report Type: 
  Country: None (occurrence: None)
  Receive Date: 20110218
  Receipt Date: 20110208
  Transmission Date: 20110831
  Serious: Yes (Hospitalization)
  Sender: FDA-Public Use
  Company Number: B0698508A

PATIENT
  Sex: Male
  Weight: 60 kg

DRUGS (2)
  1. ARIXTRA [Suspect]
     Indication: THROMBOSIS PROPHYLAXIS
     Dosage: 2.5MG PER DAY
     Route: 058
     Dates: start: 20090513, end: 20090517
  2. ACETAMINOPHEN [Concomitant]
     Route: 065
     Dates: start: 20090513

REACTIONS (3)
  - SHOCK HAEMORRHAGIC [None]
  - HAEMATOMA [None]
  - HAEMOTHORAX [None]
